FAERS Safety Report 6441119-3 (Version None)
Quarter: 2009Q4

REPORT INFORMATION
  Report Type: 
  Country: None (occurrence: None)
  Receive Date: 20091116
  Receipt Date: 20091106
  Transmission Date: 20100525
  Serious: Yes (Hospitalization)
  Sender: FDA-Public Use
  Company Number: DE-ROCHE-668567

PATIENT
  Sex: Female
  Weight: 54 kg

DRUGS (1)
  1. CAPECITABINE [Suspect]
     Indication: BREAST CANCER
     Route: 048
     Dates: start: 20091023, end: 20091106

REACTIONS (2)
  - GASTRIC STENOSIS [None]
  - VOMITING [None]
